FAERS Safety Report 6174271-8 (Version None)
Quarter: 2009Q2

REPORT INFORMATION
  Report Type: 
  Country: None (occurrence: None)
  Receive Date: 20090430
  Receipt Date: 20080425
  Transmission Date: 20091009
  Serious: No
  Sender: FDA-Public Use
  Company Number: US-ASTRAZENECA-2008UW08536

PATIENT
  Age: 47 Year
  Sex: Female
  Weight: 95.3 kg

DRUGS (9)
  1. NEXIUM [Suspect]
     Indication: REFLUX OESOPHAGITIS
     Route: 048
  2. VITAMIN D [Concomitant]
  3. ACTONEL [Concomitant]
  4. PRAVASTATIN [Concomitant]
  5. REQUIP [Concomitant]
  6. FLEXERIL [Concomitant]
  7. XOPENEX [Concomitant]
  8. ASMANEX TWISTHALER [Concomitant]
  9. CELEXA [Concomitant]

REACTIONS (2)
  - OSTEOPENIA [None]
  - VOMITING [None]
